FAERS Safety Report 8646275 (Version 3)
Quarter: 2012Q4

REPORT INFORMATION
  Report Type: 
  Country: US (occurrence: US)
  Receive Date: 20120702
  Receipt Date: 20120924
  Transmission Date: 20130627
  Serious: No
  Sender: FDA-Public Use
  Company Number: US-ASTRAZENECA-2012SE21071

PATIENT
  Age: 60 Year
  Sex: Female

DRUGS (4)
  1. CRESTOR [Suspect]
     Route: 048
  2. ACCOLATE [Suspect]
     Route: 048
  3. ACCOLATE [Suspect]
     Route: 048
  4. ACCOLATE [Suspect]
     Route: 048

REACTIONS (4)
  - Cough [Unknown]
  - Malaise [Unknown]
  - Obstructive airways disorder [Unknown]
  - Intentional drug misuse [Unknown]
